FAERS Safety Report 7425336-1 (Version None)
Quarter: 2011Q1

REPORT INFORMATION
  Report Type: 
  Country: None (occurrence: None)
  Receive Date: 20110302
  Receipt Date: 20101213
  Transmission Date: 20110831
  Serious: No
  Sender: FDA-Public Use
  Company Number: 017401

PATIENT
  Sex: Male
  Weight: 78.5 kg

DRUGS (3)
  1. ENTOCORT EC [Concomitant]
  2. SYNTHROID [Concomitant]
  3. CIMZIA [Suspect]
     Indication: CROHN'S DISEASE
     Dosage: (SUBCUTANEOUS)
     Route: 058
     Dates: start: 20100710, end: 20101007

REACTIONS (9)
  - RASH [None]
  - DIARRHOEA [None]
  - HEADACHE [None]
  - FURUNCLE [None]
  - VISION BLURRED [None]
  - LIMB INJURY [None]
  - PAIN [None]
  - DRUG INEFFECTIVE [None]
  - ABDOMINAL PAIN [None]
